FAERS Safety Report 5452269-2 (Version None)
Quarter: 2007Q3

REPORT INFORMATION
  Report Type: 
  Country: None (occurrence: None)
  Receive Date: 20070912
  Receipt Date: 20070912
  Transmission Date: 20080115
  Serious: Yes (Other)
  Sender: FDA-Public Use
  Company Number: None

PATIENT
  Age: 64 Year
  Sex: Male
  Weight: 99.7913 kg

DRUGS (1)
  1. ANTIFUNGAL OINTMENT MAXIMUM STRENGTH CVS PHARMACY, INC., WOONSOCKET, R [Suspect]
     Indication: TINEA INFECTION
     Dosage: THIN LAYER DAILY TOP
     Route: 061
     Dates: start: 20070911, end: 20070911

REACTIONS (2)
  - APPLICATION SITE IRRITATION [None]
  - APPLICATION SITE PAIN [None]
